FAERS Safety Report 5061287-8 (Version None)
Quarter: 2006Q3

REPORT INFORMATION
  Report Type: 
  Country: None (occurrence: None)
  Receive Date: 20060720
  Receipt Date: 20060720
  Transmission Date: 20061208
  Serious: Yes (Hospitalization)
  Sender: FDA-Public Use
  Company Number: None

PATIENT
  Age: 85 Year
  Sex: Male
  Weight: 90.7194 kg

DRUGS (16)
  1. FUROSEMIDE [Suspect]
     Indication: CARDIAC FAILURE CONGESTIVE
     Dosage: 60 MG DAILY
     Dates: start: 20060113
  2. FUROSEMIDE [Suspect]
     Indication: CARDIAC FAILURE CONGESTIVE
     Dosage: 60 MG DAILY
     Dates: start: 20060308
  3. ACCU-CHEK COMFORT CV (GLUCOSE) TEST STRIP [Concomitant]
  4. ACETAMINOPHEN [Concomitant]
  5. ASPIRIN [Concomitant]
  6. CLOPIDOGREL BISULFATE [Concomitant]
  7. CLOTRIMAZOLE [Concomitant]
  8. ENALAPRIL MALEATE [Concomitant]
  9. FUROSEMIDE [Concomitant]
  10. GLYBURIDE [Concomitant]
  11. ISOSORBIDE DINITRATE [Concomitant]
  12. LANCET, TECHLITE [Concomitant]
  13. LOVASTATIN [Concomitant]
  14. METOPROLOL SUCCINATE [Concomitant]
  15. MULTIVITAMIN/MINERALS THERAPEUT [Concomitant]
  16. SENNOSIDES [Concomitant]

REACTIONS (2)
  - BLOOD CREATININE INCREASED [None]
  - DEHYDRATION [None]
